FAERS Safety Report 10241604 (Version 1)
Quarter: 2014Q2

REPORT INFORMATION
  Report Type: Spontaneous
  Country: US (occurrence: None)
  Receive Date: 20140613
  Receipt Date: 20140613
  Transmission Date: 20141212
  Serious: Yes (Hospitalization)
  Sender: FDA-Public Use
  Company Number: UNT-2014-001638

PATIENT
  Age: 69 Year
  Sex: Male
  Weight: 87.1 kg

DRUGS (2)
  1. TYVASO [Suspect]
     Indication: COR PULMONALE CHRONIC
     Route: 055
     Dates: start: 20110908
  2. ADCIRCA (TADALAFIL) [Concomitant]

REACTIONS (1)
  - Life support [None]
